FAERS Safety Report 5121343-2 (Version None)
Quarter: 2006Q4

REPORT INFORMATION
  Report Type: 
  Country: None (occurrence: None)
  Receive Date: 20061002
  Receipt Date: 20060920
  Transmission Date: 20070319
  Serious: Yes (Death, Other)
  Sender: FDA-Public Use
  Company Number: US_0509122432

PATIENT
  Age: 11 Year
  Sex: Male
  Weight: 27.2 kg

DRUGS (6)
  1. ZYPREXA [Suspect]
     Indication: INSOMNIA
     Dosage: SEE IMAGE
     Route: 048
     Dates: start: 20010115, end: 20030201
  2. ZYPREXA [Suspect]
     Indication: INSOMNIA
     Dosage: SEE IMAGE
     Route: 048
     Dates: start: 20000901
  3. DOXEPIN HYDROCHLORIDE (DOXEPIN HYDROCHLORIDE) [Concomitant]
  4. PREDNISONE TAB [Concomitant]
  5. CUTIVATE (FLUTICASONE PROPIONATE) [Concomitant]
  6. FLONASE [Concomitant]

REACTIONS (10)
  - HYPERPHAGIA [None]
  - HYPERTENSION [None]
  - METABOLIC DISORDER [None]
  - MICROCYTIC ANAEMIA [None]
  - MYOCARDIAL INFARCTION [None]
  - POLYDIPSIA [None]
  - POLYURIA [None]
  - THROMBOSIS [None]
  - VISION BLURRED [None]
  - WEIGHT DECREASED [None]
